FAERS Safety Report 4558987-2 (Version None)
Quarter: 2005Q1

REPORT INFORMATION
  Report Type: 
  Country: None (occurrence: None)
  Receive Date: 20050121
  Receipt Date: 20050111
  Transmission Date: 20050727
  Serious: Yes (Hospitalization, Other)
  Sender: FDA-Public Use
  Company Number: GB-ABBOTT-05P-167-0286210-00

PATIENT
  Age: 14 Year
  Sex: Male

DRUGS (4)
  1. DEPAKOTE [Suspect]
     Indication: BIPOLAR DISORDER
     Route: 048
     Dates: start: 20040101, end: 20041001
  2. QUETIAPINE [Suspect]
     Indication: BIPOLAR DISORDER
     Route: 048
     Dates: start: 20040101, end: 20041001
  3. DIAZEPAM [Concomitant]
     Indication: ANXIETY
     Route: 048
  4. DIAZEPAM [Concomitant]
     Indication: ABNORMAL BEHAVIOUR

REACTIONS (4)
  - HYPERSENSITIVITY [None]
  - INFLUENZA [None]
  - OROPHARYNGEAL SWELLING [None]
  - URTICARIA [None]
